FAERS Safety Report 9110015 (Version 1)
Quarter: 2013Q1

REPORT INFORMATION
  Report Type: Spontaneous
  Country: CO (occurrence: CO)
  Receive Date: 20130222
  Receipt Date: 20130222
  Transmission Date: 20140127
  Serious: Yes (Other)
  Sender: FDA-Public Use
  Company Number: CO-PFIZER INC-2013066751

PATIENT
  Sex: Male

DRUGS (2)
  1. LYRICA [Suspect]
     Indication: SPINAL PAIN
     Dosage: 75 MG, 1X/DAY
     Route: 048
     Dates: start: 2010
  2. VITAMIN B6 [Concomitant]
     Indication: MYALGIA
     Dosage: UNK
     Route: 048
     Dates: start: 201208

REACTIONS (2)
  - Road traffic accident [Recovering/Resolving]
  - Pain [Recovering/Resolving]
